FAERS Safety Report 10200282 (Version 1)
Quarter: 2014Q2

REPORT INFORMATION
  Report Type: Spontaneous
  Country: GB (occurrence: GB)
  Receive Date: 20140527
  Receipt Date: 20140527
  Transmission Date: 20141212
  Serious: Yes (Other)
  Sender: FDA-Public Use
  Company Number: GB-TEVA-482504ISR

PATIENT
  Age: 41 Year
  Sex: Female
  Weight: 123.82 kg

DRUGS (9)
  1. VENLAFAXINE [Suspect]
     Indication: DEPRESSION
     Dosage: LOW DOSE
     Route: 048
  2. VENLAFAXINE [Suspect]
     Dosage: THEN 225MG
     Route: 048
  3. VENLAFAXINE [Suspect]
     Dosage: THEN INCREASED TO 300MG
     Route: 048
     Dates: start: 20140415
  4. DOCUSATE [Concomitant]
  5. METFORMIN [Concomitant]
  6. MIRTAZAPINE [Concomitant]
     Dates: start: 20140222, end: 20140501
  7. SIMVASTATIN [Concomitant]
  8. SODIUM VALPROATE [Concomitant]
  9. OMEPRAZOLE [Concomitant]

REACTIONS (8)
  - Agitation [Not Recovered/Not Resolved]
  - Nausea [Not Recovered/Not Resolved]
  - Restlessness [Not Recovered/Not Resolved]
  - Abnormal dreams [Not Recovered/Not Resolved]
  - Irritability [Not Recovered/Not Resolved]
  - Panic reaction [Not Recovered/Not Resolved]
  - Crying [Not Recovered/Not Resolved]
  - Tachyphrenia [Not Recovered/Not Resolved]
